FAERS Safety Report 10023501 (Version 2)
Quarter: 2014Q2

REPORT INFORMATION
  Report Type: Spontaneous
  Country: DE (occurrence: DE)
  Receive Date: 20140320
  Receipt Date: 20140403
  Transmission Date: 20141212
  Serious: Yes (Death, Other)
  Sender: FDA-Public Use
  Company Number: DE-CELGENEUS-062-21880-14030596

PATIENT
  Age: 78 Year
  Sex: Male
  Weight: 107 kg

DRUGS (8)
  1. REVLIMID [Suspect]
     Indication: PLASMA CELL MYELOMA
     Dosage: 5 MILLIGRAM
     Route: 048
     Dates: start: 201402, end: 20140301
  2. HYDROMORPHONE [Concomitant]
     Indication: PAIN
     Dosage: 8 MILLIGRAM
     Route: 048
     Dates: start: 20131227, end: 20140305
  3. TORASEMIDE [Concomitant]
     Indication: CARDIAC FAILURE
     Dosage: 20 MILLIGRAM
     Route: 048
     Dates: start: 20131227, end: 20140305
  4. AMIODARONE [Concomitant]
     Indication: ARRHYTHMIA
     Dosage: 200 MILLIGRAM
     Route: 048
     Dates: start: 20131227, end: 20140305
  5. CARVEDILOL [Concomitant]
     Indication: CARDIAC FAILURE
     Dosage: 25 MILLIGRAM
     Route: 048
     Dates: start: 20131227, end: 20140305
  6. MIRTAZAPIN [Concomitant]
     Indication: SLEEP DISORDER
     Dosage: 45 MILLIGRAM
     Route: 048
     Dates: start: 20131227, end: 20140305
  7. CITALOPRAM [Concomitant]
     Indication: DEPRESSION
     Dosage: 20 MILLIGRAM
     Route: 048
     Dates: start: 20131227, end: 20140305
  8. ACICLOVIR [Concomitant]
     Indication: PROPHYLAXIS
     Dosage: 40 MILLIGRAM
     Route: 048
     Dates: start: 20131227, end: 20140305

REACTIONS (3)
  - Syncope [Fatal]
  - Somnolence [Fatal]
  - Sepsis [Fatal]
